FAERS Safety Report 5339378-3 (Version None)
Quarter: 2007Q2

REPORT INFORMATION
  Report Type: 
  Country: None (occurrence: None)
  Receive Date: 20070322
  Receipt Date: 20061127
  Transmission Date: 20071010
  Serious: Yes (Hospitalization)
  Sender: FDA-Public Use
  Company Number: 200613779BCC

PATIENT
  Age: 67 Year
  Sex: Female
  Weight: 81.1939 kg

DRUGS (4)
  1. ALEVE [Suspect]
     Indication: ARTHRALGIA
     Dosage: 220 MIG, BID; ORAL
     Route: 048
     Dates: start: 20060801
  2. ALEVE [Suspect]
     Indication: NEURALGIA
     Dosage: 220 MIG, BID; ORAL
     Route: 048
     Dates: start: 20060801
  3. LYRICA [Suspect]
     Indication: NEURALGIA
     Dates: start: 20060801
  4. FENTANYL [Concomitant]

REACTIONS (17)
  - ABDOMINAL PAIN UPPER [None]
  - CHEST PAIN [None]
  - FAECES DISCOLOURED [None]
  - HYPERSENSITIVITY [None]
  - HYPERTENSION [None]
  - MUSCULOSKELETAL CHEST PAIN [None]
  - MYOCARDIAL INFARCTION [None]
  - NAUSEA [None]
  - PRURITUS [None]
  - RASH [None]
  - RASH PUSTULAR [None]
  - SCAB [None]
  - SCAR [None]
  - SWELLING [None]
  - SWELLING FACE [None]
  - URTICARIA [None]
  - VOMITING [None]
